FAERS Safety Report 9443040 (Version 1)
Quarter: 2013Q3

REPORT INFORMATION
  Report Type: Spontaneous
  Country: ES (occurrence: ES)
  Receive Date: 20130806
  Receipt Date: 20130806
  Transmission Date: 20140515
  Serious: Yes (Hospitalization)
  Sender: FDA-Public Use
  Company Number: ES-B.I. PHARMACEUTICALS,INC./RIDGEFIELD-2013-ES-00428ES

PATIENT
  Age: 20 Year
  Sex: Male

DRUGS (6)
  1. ATROVENT [Suspect]
     Indication: BRONCHOSPASM
     Dosage: STRENGTH: 500 MCG/2ML
     Route: 055
     Dates: start: 20121108, end: 20121112
  2. MOTOSOL [Suspect]
     Route: 055
     Dates: start: 20121108, end: 20121112
  3. AUGMENTINE [Suspect]
     Indication: ASPIRATION
     Dosage: STRENGTH:1000 MG/200MG. DD: 3DF
     Route: 042
     Dates: start: 20121108
  4. VENTOLIN [Suspect]
     Indication: BRONCHOSPASM
     Dosage: STRENGTH: 5MG/ML
     Route: 055
     Dates: start: 20121108, end: 20121112
  5. KEPPRA [Concomitant]
     Indication: EPILEPSY
     Dosage: 1500 MG
     Route: 048
     Dates: start: 2010
  6. NOIAFREN [Concomitant]
     Indication: EPILEPSY
     Dosage: 25 MG
     Route: 048
     Dates: start: 2008

REACTIONS (1)
  - Hypokalaemia [Recovered/Resolved]
